FAERS Safety Report 21087369 (Version 3)
Quarter: 2023Q4

REPORT INFORMATION
  Report Type: Report from Study
  Country: DE (occurrence: None)
  Receive Date: 20220715
  Receipt Date: 20231117
  Transmission Date: 20240109
  Serious: Yes (Hospitalization)
  Sender: FDA-Public Use
  Company Number: DE-ROCHE-3071195

PATIENT
  Age: 55 Year
  Sex: Male
  Weight: 83 kg

DRUGS (4)
  1. ATEZOLIZUMAB [Suspect]
     Active Substance: ATEZOLIZUMAB
     Indication: Ductal adenocarcinoma of pancreas
     Route: 041
     Dates: start: 20220324
  2. PELAREOREP [Suspect]
     Active Substance: PELAREOREP
     Indication: Ductal adenocarcinoma of pancreas
     Dosage: 4.510^10U
     Route: 042
     Dates: start: 20220322
  3. GEMCITABINE [Suspect]
     Active Substance: GEMCITABINE
     Indication: Ductal adenocarcinoma of pancreas
     Route: 042
     Dates: start: 20220322
  4. PACLITAXEL [Suspect]
     Active Substance: PACLITAXEL
     Indication: Ductal adenocarcinoma of pancreas
     Route: 042
     Dates: start: 20220322

REACTIONS (1)
  - Pancytopenia [Recovered/Resolved]

NARRATIVE: CASE EVENT DATE: 20220329
